FAERS Safety Report 12400411 (Version 1)
Quarter: 2016Q2

REPORT INFORMATION
  Report Type: Spontaneous
  Country: US (occurrence: None)
  Receive Date: 20160524
  Receipt Date: 20160524
  Transmission Date: 20160815
  Serious: No
  Sender: FDA-Public Use
  Company Number: None

PATIENT
  Age: 57 Year
  Sex: Female
  Weight: 58.97 kg

DRUGS (6)
  1. CANNULA [Concomitant]
  2. HERBAL OILS [Concomitant]
  3. AMOXICILLIN. [Suspect]
     Active Substance: AMOXICILLIN
  4. OXYGEN. [Concomitant]
     Active Substance: OXYGEN
  5. D-3 [Concomitant]
     Active Substance: CHOLECALCIFEROL
  6. MAGNESIUM [Concomitant]
     Active Substance: MAGNESIUM

REACTIONS (8)
  - Paraesthesia [None]
  - Abdominal pain upper [None]
  - Lip blister [None]
  - Lip swelling [None]
  - Chapped lips [None]
  - Diarrhoea [None]
  - Abdominal pain [None]
  - Oral discomfort [None]

NARRATIVE: CASE EVENT DATE: 20160417
